FAERS Safety Report 8043704-4 (Version None)
Quarter: 2012Q1

REPORT INFORMATION
  Report Type: 
  Country: None (occurrence: None)
  Receive Date: 20120112
  Receipt Date: 20091021
  Transmission Date: 20120608
  Serious: Yes (Other)
  Sender: FDA-Public Use
  Company Number: PHHY2009BR37642

PATIENT
  Age: 23 Year
  Sex: Female

DRUGS (1)
  1. METHERGINE [Suspect]

REACTIONS (2)
  - INTENTIONAL DRUG MISUSE [None]
  - MATERNAL EXPOSURE DURING PREGNANCY [None]
